FAERS Safety Report 6424963-8 (Version None)
Quarter: 2009Q4

REPORT INFORMATION
  Report Type: 
  Country: None (occurrence: None)
  Receive Date: 20091103
  Receipt Date: 20091029
  Transmission Date: 20100525
  Serious: Yes (Hospitalization)
  Sender: FDA-Public Use
  Company Number: US-ELI_LILLY_AND_COMPANY-US200910007553

PATIENT
  Sex: Female
  Weight: 74.83 kg

DRUGS (4)
  1. BYETTA [Suspect]
     Indication: TYPE 2 DIABETES MELLITUS
     Dosage: 5 UG, 2/D
     Route: 058
     Dates: start: 20070101, end: 20070101
  2. BYETTA [Suspect]
     Dosage: 10 UG, 2/D
     Route: 058
     Dates: start: 20070101, end: 20090927
  3. DIOVAN [Concomitant]
     Indication: PROPHYLAXIS
     Dosage: UNK, UNKNOWN
     Route: 048
     Dates: end: 20091001
  4. VICODIN [Concomitant]
     Indication: PAIN
     Dosage: UNK, UNKNOWN
     Dates: start: 20090901

REACTIONS (10)
  - ARTHRITIS [None]
  - ARTHROPATHY [None]
  - BLOOD GLUCOSE FLUCTUATION [None]
  - BLOOD GLUCOSE INCREASED [None]
  - CHONDROPATHY [None]
  - CHROMATURIA [None]
  - CYSTITIS [None]
  - PROCEDURAL COMPLICATION [None]
  - PROCEDURAL PAIN [None]
  - WALKING AID USER [None]
